FAERS Safety Report 17287253 (Version 2)
Quarter: 2022Q1

REPORT INFORMATION
  Report Type: Spontaneous
  Country: GB (occurrence: GB)
  Receive Date: 20200120
  Receipt Date: 20220328
  Transmission Date: 20220423
  Serious: Yes (Hospitalization, Other)
  Sender: FDA-Public Use
  Company Number: None

PATIENT
  Age: 55 Year
  Sex: Male

DRUGS (10)
  1. ATORVASTATIN [Suspect]
     Active Substance: ATORVASTATIN
     Indication: Product used for unknown indication
     Dosage: 120 MG, QD (TOOK 3 DAYS WORTH OF MEDICATION - OVERDOSE)
     Route: 005
     Dates: start: 20190327, end: 20190327
  2. METFORMIN [Suspect]
     Active Substance: METFORMIN HYDROCHLORIDE
     Dosage: 3 GRAM (TOOK 3 DAYS WORTH OF MEDICATION - OVERDOSE)
     Route: 065
     Dates: start: 20190327, end: 20190327
  3. RAMIPRIL [Suspect]
     Active Substance: RAMIPRIL
     Dosage: 7.5 MILLIGRAM (TOOK 3 DAYS WORTH OF MEDICATION - OVERDOSE)
     Route: 065
     Dates: start: 20190327, end: 20190327
  4. CLOZAPINE [Suspect]
     Active Substance: CLOZAPINE
     Dosage: 1 G, 1X/DAY; CUMULATIVE DOSE: 4956.0415 G
     Route: 048
     Dates: start: 20050805, end: 201808
  5. CLOZAPINE [Suspect]
     Active Substance: CLOZAPINE
     Route: 048
     Dates: start: 20190116, end: 201903
  6. CLOZAPINE [Suspect]
     Active Substance: CLOZAPINE
     Route: 048
     Dates: start: 20181120, end: 201901
  7. CLOZAPINE [Suspect]
     Active Substance: CLOZAPINE
     Route: 048
     Dates: start: 20180828, end: 201811
  8. CLOZAPINE [Suspect]
     Active Substance: CLOZAPINE
     Route: 048
     Dates: start: 2019
  9. CLOZAPINE [Suspect]
     Active Substance: CLOZAPINE
     Dosage: 1 GRAM, UNK (TOOK 3 DAYS WORTH OF MEDICATION - OVERDOSE), CUMULATIVE DOSE: 26 G
     Route: 048
     Dates: start: 20190327, end: 20190327
  10. CLOZAPINE [Suspect]
     Active Substance: CLOZAPINE
     Dosage: 1 GRAM, UNK (TOOK 3 DAYS WORTH OF MEDICATION - OVERDOSE), CUMULATIVE DOSE: 16 G
     Route: 048
     Dates: start: 20190317, end: 20190317

REACTIONS (10)
  - Tricuspid valve incompetence [Unknown]
  - Metabolic acidosis [Recovered/Resolved]
  - Body temperature decreased [Recovered/Resolved]
  - Pneumonia aspiration [Recovering/Resolving]
  - Blood glucose decreased [Recovered/Resolved]
  - White blood cell count increased [Unknown]
  - Neutrophil count increased [Unknown]
  - Hypotension [Recovered/Resolved]
  - Tachycardia [Recovered/Resolved]
  - Overdose [Recovered/Resolved]

NARRATIVE: CASE EVENT DATE: 20190301
